FAERS Safety Report 8757366 (Version 1)
Quarter: 2012Q4

REPORT INFORMATION
  Report Type: 
  Country: US (occurrence: US)
  Receive Date: 20120828
  Receipt Date: 20120828
  Transmission Date: 20130627
  Serious: Yes (Hospitalization)
  Sender: FDA-Public Use
  Company Number: US-BAYER-2012-087316

PATIENT
  Age: 28 Year
  Sex: Female
  Weight: 53 kg

DRUGS (9)
  1. YAZ [Suspect]
     Indication: PREMENSTRUAL SYNDROME
  2. OCELLA [Suspect]
  3. ZOCOR [Concomitant]
     Dosage: 40 mg, nightly
     Route: 048
  4. POLYMYXIN B -TRIMETHOPRIM OPHTHA. [Concomitant]
     Dosage: 1 drop each eye every 4 hours
  5. TYLENOL [Concomitant]
  6. DEXTROSE [Concomitant]
  7. GLUCAGON [Concomitant]
  8. INFLUENZA VACCINES [Concomitant]
  9. INSULIN [Concomitant]

REACTIONS (1)
  - Transient ischaemic attack [None]
